FAERS Safety Report 21382276 (Version 1)
Quarter: 2022Q3

REPORT INFORMATION
  Report Type: Other
  Country: US (occurrence: US)
  Receive Date: 20220927
  Receipt Date: 20220927
  Transmission Date: 20221026
  Serious: Yes (Hospitalization, Other)
  Sender: FDA-Public Use
  Company Number: US-Prasco Laboratories-PRAS20220316

PATIENT
  Age: 75 Year
  Sex: Female

DRUGS (1)
  1. SULFAMETHOXAZOLE AND TRIMETHOPRIM [Suspect]
     Active Substance: SULFAMETHOXAZOLE\TRIMETHOPRIM
     Indication: Urinary tract infection
     Dosage: UNKNOWN
     Route: 065

REACTIONS (11)
  - Cryoglobulinaemia [Recovering/Resolving]
  - Cutaneous vasculitis [Recovering/Resolving]
  - Rash [Recovering/Resolving]
  - Ecchymosis [Recovering/Resolving]
  - Hypoproteinaemia [Unknown]
  - Skin tightness [Recovering/Resolving]
  - Oedema [Recovering/Resolving]
  - Blister [Recovering/Resolving]
  - Blister rupture [Recovering/Resolving]
  - Dysphagia [Unknown]
  - Dysphonia [Unknown]
